FAERS Safety Report 5578756-4 (Version None)
Quarter: 2008Q1

REPORT INFORMATION
  Report Type: 
  Country: None (occurrence: None)
  Receive Date: 20080102
  Receipt Date: 20071130
  Transmission Date: 20080703
  Serious: Yes (Congenital Anomaly)
  Sender: FDA-Public Use
  Company Number: CH-BAYER-200718515GPV

PATIENT

DRUGS (1)
  1. YASMIN [Suspect]
     Route: 064
     Dates: end: 20070630

REACTIONS (1)
  - SINGLE UMBILICAL ARTERY [None]
